FAERS Safety Report 6861635-X (Version None)
Quarter: 2010Q3

REPORT INFORMATION
  Report Type: 
  Country: None (occurrence: None)
  Receive Date: 20100721
  Receipt Date: 20100712
  Transmission Date: 20110219
  Serious: No
  Sender: FDA-Public Use
  Company Number: US-BIOGENIDEC-2010BI013849

PATIENT
  Age: 70 Year
  Sex: Female

DRUGS (2)
  1. TYSABRI [Suspect]
     Indication: MULTIPLE SCLEROSIS
     Route: 042
     Dates: start: 19990101, end: 20000101
  2. TYSABRI [Suspect]
     Route: 042
     Dates: start: 20090428

REACTIONS (13)
  - ALOPECIA [None]
  - ARTHRALGIA [None]
  - BLADDER DISORDER [None]
  - COUGH [None]
  - DIZZINESS [None]
  - DYSPHAGIA [None]
  - FALL [None]
  - FATIGUE [None]
  - HEADACHE [None]
  - JOINT SWELLING [None]
  - LIGAMENT RUPTURE [None]
  - LOWER LIMB FRACTURE [None]
  - SYNOVIAL CYST [None]
